FAERS Safety Report 8575448-4 (Version None)
Quarter: 2012Q3

REPORT INFORMATION
  Report Type: 
  Country: None (occurrence: None)
  Receive Date: 20120807
  Receipt Date: 20120731
  Transmission Date: 20120928
  Serious: Yes (Other)
  Sender: FDA-Public Use
  Company Number: PHHY2012MX067425

PATIENT
  Sex: Female

DRUGS (4)
  1. PROPRANOLOL [Concomitant]
     Indication: CARDIAC DISORDER
     Dosage: 0.5 DF, PER DAY
     Dates: start: 20100701
  2. NOVOTIRAL [Concomitant]
     Indication: THYROID DISORDER
     Dosage: 1 DF, PER DAY
     Dates: start: 20080701
  3. METFORMIN HCL [Concomitant]
     Indication: DIABETES MELLITUS
     Dosage: 1 DF, PER DAY
  4. DIOVAN HCT [Suspect]
     Indication: HYPERTENSION
     Dosage: 1 DF, UNK
     Dates: start: 20060701

REACTIONS (3)
  - BREAST CANCER [None]
  - BLOOD TRIGLYCERIDES INCREASED [None]
  - BLOOD CHOLESTEROL INCREASED [None]
